FAERS Safety Report 5728972-3 (Version None)
Quarter: 2008Q2

REPORT INFORMATION
  Report Type: 
  Country: None (occurrence: None)
  Receive Date: 20080506
  Receipt Date: 20080425
  Transmission Date: 20081010
  Serious: Yes (Disabling)
  Sender: FDA-Public Use
  Company Number: US-MERCK-0804USA05533

PATIENT
  Age: 78 Year
  Sex: Male

DRUGS (6)
  1. COZAAR [Suspect]
     Indication: BLOOD PRESSURE
     Route: 048
     Dates: start: 20030101
  2. LOPRESSOR [Suspect]
     Route: 065
  3. LIPITOR [Concomitant]
     Route: 065
  4. VITAMINS (UNSPECIFIED) [Concomitant]
     Route: 065
  5. ASPIRIN [Concomitant]
     Route: 065
  6. VITAMIN E [Concomitant]
     Route: 065

REACTIONS (3)
  - CHEST DISCOMFORT [None]
  - DRUG INEFFECTIVE [None]
  - WRONG TECHNIQUE IN DRUG USAGE PROCESS [None]
